FAERS Safety Report 10373296 (Version 7)
Quarter: 2015Q3

REPORT INFORMATION
  Report Type: Report from Study
  Country: IT (occurrence: IT)
  Receive Date: 20140808
  Receipt Date: 20150929
  Transmission Date: 20151125
  Serious: Yes (Death, Hospitalization)
  Sender: FDA-Public Use
  Company Number: IT-ROCHE-1414936

PATIENT
  Age: 73 Year
  Sex: Male

DRUGS (39)
  1. PARACETAMOL [Concomitant]
     Active Substance: ACETAMINOPHEN
     Route: 048
     Dates: start: 20140402, end: 20140402
  2. ASA [Concomitant]
     Active Substance: ASPIRIN
     Route: 065
     Dates: start: 20140604
  3. LANSOPRAZOLE. [Concomitant]
     Active Substance: LANSOPRAZOLE
     Dosage: PROPHYLACTIC ADMINISTRATION
     Route: 048
     Dates: start: 20140328
  4. LANSOPRAZOLE. [Concomitant]
     Active Substance: LANSOPRAZOLE
     Route: 065
     Dates: start: 20140604
  5. CHLORPHENIRAMINE. [Concomitant]
     Active Substance: CHLORPHENIRAMINE
     Route: 042
     Dates: start: 20140429, end: 20140429
  6. OBINUTUZUMAB [Suspect]
     Active Substance: OBINUTUZUMAB
     Indication: CHRONIC LYMPHOCYTIC LEUKAEMIA
     Dosage: CYCLE 1, DAY 1
     Route: 042
     Dates: start: 20140401
  7. ALLOPURINOL. [Concomitant]
     Active Substance: ALLOPURINOL
     Dosage: PROPHYLACTIC ADMINISTRATION
     Route: 048
     Dates: start: 20140331
  8. FUROSEMIDE. [Concomitant]
     Active Substance: FUROSEMIDE
     Route: 042
     Dates: start: 20140513, end: 20140513
  9. BECLOMETHASONE [Concomitant]
     Active Substance: BECLOMETHASONE
     Route: 065
     Dates: start: 20140605
  10. SALBUTAMOL [Concomitant]
     Active Substance: ALBUTEROL
     Route: 065
     Dates: start: 20140605, end: 20140606
  11. PARACETAMOL [Concomitant]
     Active Substance: ACETAMINOPHEN
     Indication: PROPHYLAXIS
     Route: 048
     Dates: start: 20140401, end: 20140401
  12. CHLORPHENIRAMINE. [Concomitant]
     Active Substance: CHLORPHENIRAMINE
     Route: 042
     Dates: start: 20140402, end: 20140402
  13. CHLORPHENIRAMINE. [Concomitant]
     Active Substance: CHLORPHENIRAMINE
     Route: 042
     Dates: start: 20140415, end: 20140415
  14. OBINUTUZUMAB [Suspect]
     Active Substance: OBINUTUZUMAB
     Dosage: CYCLE 1 DAY 8
     Route: 042
     Dates: start: 20140408, end: 20140408
  15. MAGALDRATE [Concomitant]
     Active Substance: MAGALDRATE
     Route: 048
     Dates: start: 20140402, end: 20140603
  16. ALDACTONE (ITALY) [Concomitant]
     Route: 065
     Dates: start: 20140604
  17. METHYLPREDNISOLONE. [Concomitant]
     Active Substance: METHYLPREDNISOLONE
     Route: 042
     Dates: start: 20140408, end: 20140408
  18. METHYLPREDNISOLONE. [Concomitant]
     Active Substance: METHYLPREDNISOLONE
     Route: 042
     Dates: start: 20140415, end: 20140415
  19. METHYLPREDNISOLONE. [Concomitant]
     Active Substance: METHYLPREDNISOLONE
     Route: 042
     Dates: start: 20140429, end: 20140429
  20. IPRATROPIUM BROMIDE. [Concomitant]
     Active Substance: IPRATROPIUM BROMIDE
     Route: 065
     Dates: start: 20140605, end: 20140606
  21. OBINUTUZUMAB [Suspect]
     Active Substance: OBINUTUZUMAB
     Dosage: CYCLE 1 DAY 2
     Route: 042
     Dates: start: 20140402, end: 20140402
  22. OBINUTUZUMAB [Suspect]
     Active Substance: OBINUTUZUMAB
     Dosage: CYCLE 1 DAY 15. DATE OF LAST DOSE PRIOR TO SERIOUS ADVERSE EVENTS WAS 29/APR/2014.
     Route: 042
     Dates: start: 20140415, end: 20140415
  23. DELORAZEPAM [Concomitant]
     Active Substance: DELORAZEPAM
     Dosage: 10 DROPS
     Route: 048
     Dates: start: 20140423
  24. PARACETAMOL [Concomitant]
     Active Substance: ACETAMINOPHEN
     Route: 048
     Dates: start: 20140408, end: 20140408
  25. PARACETAMOL [Concomitant]
     Active Substance: ACETAMINOPHEN
     Route: 048
     Dates: start: 20140415, end: 20140415
  26. PARACETAMOL [Concomitant]
     Active Substance: ACETAMINOPHEN
     Route: 048
     Dates: start: 20140429, end: 20140429
  27. FLUCONAZOLE. [Concomitant]
     Active Substance: FLUCONAZOLE
     Indication: PROPHYLAXIS
     Route: 048
     Dates: start: 20140530, end: 20140604
  28. TRIATEC (CODEINE PHOSPHATE/PARACETAMOL) [Concomitant]
     Dosage: DOSE OTHER, 2.5 + 15 MG
     Route: 048
     Dates: start: 20140328
  29. CHLORPHENIRAMINE. [Concomitant]
     Active Substance: CHLORPHENIRAMINE
     Indication: PROPHYLAXIS
     Route: 042
     Dates: start: 20140401, end: 20140401
  30. CHLORPHENIRAMINE. [Concomitant]
     Active Substance: CHLORPHENIRAMINE
     Route: 042
     Dates: start: 20140408, end: 20140408
  31. TRIATEC (CODEINE PHOSPHATE/PARACETAMOL) [Concomitant]
     Route: 065
     Dates: start: 20140604
  32. CHLORAMBUCIL [Suspect]
     Active Substance: CHLORAMBUCIL
     Indication: CHRONIC LYMPHOCYTIC LEUKAEMIA
     Dosage: CYCLE 1 DAY 1
     Route: 048
     Dates: start: 20140401, end: 20140401
  33. CHLORAMBUCIL [Suspect]
     Active Substance: CHLORAMBUCIL
     Dosage: CYCLE 1 DAY 15. DATE OF LAST DOSE PRIOR TO SERIOUS ADVERSE EVENTS WAS 29/APR/2014.
     Route: 048
     Dates: start: 20140415, end: 20140415
  34. ASA [Concomitant]
     Active Substance: ASPIRIN
     Route: 048
     Dates: start: 20140328
  35. ISONIAZIDE [Concomitant]
     Active Substance: ISONIAZID
     Dosage: PROPHYLACTIC ADMINISTRATION
     Route: 048
     Dates: start: 20140328
  36. PYRIDOXIN [Concomitant]
     Active Substance: PYRIDOXINE
     Dosage: PROPHYLACTIC ADMINISTRATION
     Route: 048
     Dates: start: 20140318, end: 20140603
  37. METHYLPREDNISOLONE. [Concomitant]
     Active Substance: METHYLPREDNISOLONE
     Indication: PROPHYLAXIS
     Route: 065
     Dates: start: 20140604
  38. METHYLPREDNISOLONE. [Concomitant]
     Active Substance: METHYLPREDNISOLONE
     Route: 042
     Dates: start: 20140401, end: 20140401
  39. METHYLPREDNISOLONE. [Concomitant]
     Active Substance: METHYLPREDNISOLONE
     Route: 042
     Dates: start: 20140402, end: 20140402

REACTIONS (1)
  - Pneumonia [Fatal]

NARRATIVE: CASE EVENT DATE: 20140604
